FAERS Safety Report 10555651 (Version 2)
Quarter: 2014Q4

REPORT INFORMATION
  Report Type: Spontaneous
  Country: US (occurrence: US)
  Receive Date: 20141030
  Receipt Date: 20141030
  Transmission Date: 20150529
  Serious: No
  Sender: FDA-Public Use
  Company Number: US-CUBIST PHARMACEUTICALS, INC.-2014CBST000604

PATIENT

DRUGS (6)
  1. CUBICIN [Suspect]
     Active Substance: DAPTOMYCIN
     Dosage: 900 MG (IN 0.9 % NACL), Q24H
     Route: 042
     Dates: start: 20140418, end: 20140503
  2. LISINOPRIL. [Concomitant]
     Active Substance: LISINOPRIL
     Indication: HYPERTENSION
     Dosage: 20 MG, QD
     Route: 048
  3. NORCO [Concomitant]
     Active Substance: ACETAMINOPHEN\HYDROCODONE BITARTRATE
     Indication: PAIN
     Dosage: 10-325 MG, Q4-6 HRS, PRN
     Route: 048
  4. CUBICIN [Suspect]
     Active Substance: DAPTOMYCIN
     Indication: POSTOPERATIVE WOUND INFECTION
     Dosage: 6 MG/KG (IN 0.9 % NACL), Q24H
     Route: 042
     Dates: start: 20140418, end: 20140503
  5. CUBICIN [Suspect]
     Active Substance: DAPTOMYCIN
     Dosage: 6 MG/KG (IN 0.9 % NACL), Q24H
     Route: 042
     Dates: start: 20140418, end: 20140503
  6. CUBICIN [Suspect]
     Active Substance: DAPTOMYCIN
     Indication: STAPHYLOCOCCAL INFECTION
     Dosage: 900 MG (IN 0.9 % NACL), Q24H
     Route: 042
     Dates: start: 20140418, end: 20140503

REACTIONS (3)
  - Peripheral swelling [Recovered/Resolved]
  - Skin exfoliation [Unknown]
  - Erythema [Recovered/Resolved]
